FAERS Safety Report 11524250 (Version 1)
Quarter: 2015Q3

REPORT INFORMATION
  Report Type: Spontaneous
  Country: US (occurrence: US)
  Receive Date: 20150918
  Receipt Date: 20150918
  Transmission Date: 20151125
  Serious: No
  Sender: FDA-Public Use
  Company Number: US-ROCHE-711284

PATIENT
  Age: 68 Year
  Sex: Female

DRUGS (10)
  1. RIBASPHERE [Suspect]
     Active Substance: RIBAVIRIN
     Indication: HEPATITIS C
     Dosage: DIVIDED DOSES, 3 CAPSULES TWICE DAILY
     Route: 065
  2. SYMBICORT [Concomitant]
     Active Substance: BUDESONIDE\FORMOTEROL FUMARATE DIHYDRATE
     Dosage: SYMBICORT 80-4.5 MCG INHALER MCG/ACTUATION; 2 PUFFS IN AM AND 2 PUFFS IN HS
     Route: 065
  3. TRIAMCINOLONE CREAM [Concomitant]
     Dosage: APPLY TO AFFECTED AREA TWICE A DAY
     Route: 065
  4. PEGASYS [Suspect]
     Active Substance: PEGINTERFERON ALFA-2A
     Indication: HEPATITIS C
     Dosage: FORM: PREFILLED SYRINGE
     Route: 065
  5. TRIAMCINOLONE [Concomitant]
     Active Substance: TRIAMCINOLONE
     Route: 065
  6. IBUPROFEN. [Concomitant]
     Active Substance: IBUPROFEN
     Dosage: PRN
     Route: 065
  7. ALBUTEROL. [Concomitant]
     Active Substance: ALBUTEROL
     Dosage: ALBUTEROL 90 UG INH REFILL UG; INHALE 1-2 PUFFS EVERY 4-8 HOURS AS NEEDED
     Route: 065
  8. ALBUTEROL. [Concomitant]
     Active Substance: ALBUTEROL
     Dosage: ALBUTEROL 0.083% INHAL SOLN; ONE VIAL PER NEBULIZER QID AS NEEDED
     Route: 065
  9. PRILOSEC [Concomitant]
     Active Substance: OMEPRAZOLE MAGNESIUM
     Dosage: 1 CAPSULE BY MOUTH DAILY
     Route: 048
  10. TOPROL XL [Concomitant]
     Active Substance: METOPROLOL SUCCINATE
     Dosage: ONE PO BID
     Route: 048

REACTIONS (2)
  - Lung infection [Unknown]
  - Electrocardiogram abnormal [Unknown]

NARRATIVE: CASE EVENT DATE: 20100621
